FAERS Safety Report 5072896-4 (Version None)
Quarter: 2006Q3

REPORT INFORMATION
  Report Type: 
  Country: None (occurrence: None)
  Receive Date: 20060802
  Receipt Date: 20060713
  Transmission Date: 20061208
  Serious: Yes (Death)
  Sender: FDA-Public Use
  Company Number: S06-FRA-02915-01

PATIENT
  Age: 82 Year
  Sex: Male

DRUGS (8)
  1. MEMANTINE HCL [Suspect]
     Indication: DEMENTIA ALZHEIMER'S TYPE
     Dosage: 10 MG QD PO
     Route: 048
  2. EQUANIL [Suspect]
     Indication: DYSTHYMIC DISORDER
     Dosage: 400 MG QD PO
     Route: 048
  3. PREVISCAN (FLUINDIONE) [Suspect]
     Indication: ATRIAL FIBRILLATION
     Dosage: 1 QD PO
     Route: 048
     Dates: start: 20060601, end: 20060608
  4. PREVISCAN (FLUINDIONE) [Suspect]
     Indication: ATRIAL FLUTTER
     Dosage: 1 QD PO
     Route: 048
     Dates: start: 20060601, end: 20060608
  5. FUROSEMIDE [Suspect]
     Indication: CARDIAC FAILURE
     Dosage: 20 MG QD PO
     Route: 048
  6. AMIODARONE [Suspect]
     Indication: ATRIAL FIBRILLATION
     Dates: start: 20060601, end: 20060608
  7. AMIODARONE [Suspect]
     Indication: ATRIAL FLUTTER
     Dates: start: 20060601, end: 20060608
  8. PAROXETINE HCL [Suspect]
     Indication: DYSTHYMIC DISORDER
     Dosage: 20 MG QD PO
     Route: 048

REACTIONS (6)
  - BRAIN COMPRESSION [None]
  - CEREBRAL HAEMORRHAGE [None]
  - COAGULATION TIME PROLONGED [None]
  - COMA [None]
  - DRUG INTERACTION [None]
  - INTERNATIONAL NORMALISED RATIO INCREASED [None]
